FAERS Safety Report 14270611 (Version 4)
Quarter: 2018Q1

REPORT INFORMATION
  Report Type: Report from Study
  Country: US (occurrence: US)
  Receive Date: 20171211
  Receipt Date: 20180201
  Transmission Date: 20180508
  Serious: Yes (Hospitalization, Other)
  Sender: FDA-Public Use
  Company Number: US-BAYER-2017-191261

PATIENT
  Age: 67 Year
  Sex: Male
  Weight: 102.49 kg

DRUGS (9)
  1. ADEMPAS [Suspect]
     Active Substance: RIOCIGUAT
     Indication: PULMONARY HYPERTENSION
     Dosage: 0.5 MG, TID
     Route: 048
  2. ADEMPAS [Suspect]
     Active Substance: RIOCIGUAT
     Indication: PULMONARY HYPERTENSION
     Dosage: UNK
     Dates: start: 20140910
  3. ADEMPAS [Suspect]
     Active Substance: RIOCIGUAT
     Indication: PULMONARY HYPERTENSION
     Dosage: 1.0 MG, TID
     Route: 048
  4. ADEMPAS [Suspect]
     Active Substance: RIOCIGUAT
     Indication: PULMONARY HYPERTENSION
     Dosage: 1.5 MG, TID
     Route: 048
  5. ADEMPAS [Suspect]
     Active Substance: RIOCIGUAT
     Indication: PULMONARY HYPERTENSION
     Dosage: 2.0 MG, TID
     Route: 048
  6. AMLODIPINE [Concomitant]
     Active Substance: AMLODIPINE BESYLATE
     Dosage: UNK
  7. ADEMPAS [Suspect]
     Active Substance: RIOCIGUAT
     Indication: PULMONARY HYPERTENSION
     Dosage: 2.0 MG, TID
     Route: 048
  8. ADEMPAS [Suspect]
     Active Substance: RIOCIGUAT
     Indication: PULMONARY HYPERTENSION
     Dosage: THE PATIENT TOOK MULTIPLE 0.5 MG TABLETS TO GET TO THE 2.5 MG DOSE
  9. APIXABAN [Concomitant]
     Active Substance: APIXABAN
     Dosage: UNK

REACTIONS (26)
  - Hypertension [Unknown]
  - Rales [None]
  - Hospitalisation [None]
  - Dyspnoea [Not Recovered/Not Resolved]
  - Pulmonary arterial hypertension [Unknown]
  - Ascites [None]
  - Product availability issue [Unknown]
  - Oedema peripheral [None]
  - Hospitalisation [None]
  - Oedema [Unknown]
  - Chest pain [Unknown]
  - Fatigue [Not Recovered/Not Resolved]
  - Constipation [Unknown]
  - Oedema [Not Recovered/Not Resolved]
  - Balance disorder [None]
  - Overdose [Unknown]
  - Cellulitis [None]
  - Dizziness [Not Recovered/Not Resolved]
  - Nausea [Unknown]
  - Fall [Not Recovered/Not Resolved]
  - Syncope [Unknown]
  - Orthostatic hypotension [None]
  - Ascites [Unknown]
  - Hypotension [Recovered/Resolved]
  - Oedema peripheral [Unknown]
  - Head injury [None]

NARRATIVE: CASE EVENT DATE: 2017
